FAERS Safety Report 4598822-X (Version None)
Quarter: 2005Q1

REPORT INFORMATION
  Report Type: 
  Country: None (occurrence: None)
  Receive Date: 20050301
  Receipt Date: 20050105
  Transmission Date: 20050727
  Serious: Yes (Hospitalization, Other)
  Sender: FDA-Public Use
  Company Number: 2004242238US

PATIENT
  Age: 73 Year
  Sex: Female
  Weight: 73.47 kg

DRUGS (4)
  1. BEXTRA [Suspect]
     Indication: OSTEOARTHRITIS
     Dosage: 10 MG (10 MG, 1 IN 1 D), ORAL
     Route: 048
     Dates: start: 20041004, end: 20041027
  2. FUROSEMIDE [Concomitant]
  3. CALCIUM (CALCIUM) [Concomitant]
  4. LOTREL [Concomitant]

REACTIONS (15)
  - BRAIN DAMAGE [None]
  - CIRCULATORY COLLAPSE [None]
  - CONFUSIONAL STATE [None]
  - DEMENTIA [None]
  - FATIGUE [None]
  - INFLUENZA LIKE ILLNESS [None]
  - MALAISE [None]
  - MENTAL IMPAIRMENT [None]
  - NAUSEA [None]
  - NON-HODGKIN'S LYMPHOMA [None]
  - ORAL INTAKE REDUCED [None]
  - RASH [None]
  - RENAL DISORDER [None]
  - SLUGGISHNESS [None]
  - TREMOR [None]
